FAERS Safety Report 14021818 (Version 1)
Quarter: 2017Q3

REPORT INFORMATION
  Report Type: Report from Study
  Country: US (occurrence: US)
  Receive Date: 20170928
  Receipt Date: 20170928
  Transmission Date: 20171128
  Serious: Yes (Other)
  Sender: FDA-Public Use
  Company Number: US-CLOVIS ONCOLOGY-CLO-2017-000823

PATIENT
  Age: 72 Year
  Sex: Female

DRUGS (3)
  1. RUBRACA [Suspect]
     Active Substance: RUCAPARIB CAMSYLATE
     Indication: OVARIAN CANCER
     Dosage: 200 MG, BID
     Route: 048
     Dates: start: 20170725, end: 20170731
  2. RUBRACA [Suspect]
     Active Substance: RUCAPARIB CAMSYLATE
     Dosage: 400 MG, BID
     Route: 048
     Dates: start: 20170801, end: 201708
  3. RUBRACA [Suspect]
     Active Substance: RUCAPARIB CAMSYLATE
     Dosage: 600 MG, BID
     Dates: start: 20170805

REACTIONS (10)
  - Fatigue [Not Recovered/Not Resolved]
  - Ear infection [Unknown]
  - Dysgeusia [Unknown]
  - Liver function test abnormal [Recovering/Resolving]
  - Decreased appetite [Unknown]
  - Nausea [Unknown]
  - Prescribed underdose [Unknown]
  - Haemoglobin decreased [Unknown]
  - Sinusitis [Unknown]
  - Platelet count decreased [Unknown]

NARRATIVE: CASE EVENT DATE: 2017
